FAERS Safety Report 20074708 (Version 2)
Quarter: 2021Q4

REPORT INFORMATION
  Report Type: Spontaneous
  Country: US (occurrence: US)
  Receive Date: 20211116
  Receipt Date: 20211207
  Transmission Date: 20220303
  Serious: No
  Sender: FDA-Public Use
  Company Number: US-PFIZER INC-2021814915

PATIENT
  Age: 62 Year
  Sex: Female
  Weight: 113.37 kg

DRUGS (3)
  1. INFLIXIMAB [Suspect]
     Active Substance: INFLIXIMAB
     Indication: Inflammatory bowel disease
     Dosage: 4 MG, EVERY 4WEEKS
  2. INFLIXIMAB [Suspect]
     Active Substance: INFLIXIMAB
     Indication: Colitis ulcerative
     Dosage: 10 MG/KG, EVERY 4 WEEKS
     Dates: start: 2019
  3. ASACOL HD [Concomitant]
     Active Substance: MESALAMINE
     Dosage: UNK
     Dates: start: 2013

REACTIONS (2)
  - SARS-CoV-2 antibody test positive [Unknown]
  - Antibody test abnormal [Unknown]
